FAERS Safety Report 12137500 (Version 2)
Quarter: 2016Q1

REPORT INFORMATION
  Report Type: Report from Study
  Country: US (occurrence: US)
  Receive Date: 20160302
  Receipt Date: 20160307
  Transmission Date: 20160526
  Serious: Yes (Hospitalization, Other)
  Sender: FDA-Public Use
  Company Number: US-BAYER-2016-030332

PATIENT
  Age: 79 Year
  Sex: Male

DRUGS (1)
  1. STIVARGA [Suspect]
     Active Substance: REGORAFENIB
     Indication: RECTOSIGMOID CANCER
     Dosage: 160 MG, QD
     Route: 048
     Dates: start: 20160211

REACTIONS (7)
  - Weight decreased [None]
  - Erythema [None]
  - Headache [None]
  - Hyperchlorhydria [None]
  - Feeding disorder [None]
  - Pruritus [None]
  - Abdominal pain upper [None]

NARRATIVE: CASE EVENT DATE: 20160212
